FAERS Safety Report 12053851 (Version 1)
Quarter: 2016Q1

REPORT INFORMATION
  Report Type: Spontaneous
  Country: US (occurrence: US)
  Receive Date: 20160209
  Receipt Date: 20160209
  Transmission Date: 20160526
  Serious: No
  Sender: FDA-Public Use
  Company Number: US-SA-2015SA211805

PATIENT
  Age: 55 Year
  Sex: Female

DRUGS (4)
  1. ALIROCUMAB PREFILLED PEN [Concomitant]
     Active Substance: ALIROCUMAB
     Route: 058
  2. PRALUENT [Suspect]
     Active Substance: ALIROCUMAB
     Indication: ARTERIOSCLEROSIS CORONARY ARTERY
     Route: 058
  3. PRALUENT [Suspect]
     Active Substance: ALIROCUMAB
     Indication: CAROTID ARTERY STENOSIS
     Route: 058
  4. PRALUENT [Suspect]
     Active Substance: ALIROCUMAB
     Indication: TYPE IIA HYPERLIPIDAEMIA
     Route: 058

REACTIONS (1)
  - Liver function test abnormal [Recovered/Resolved]
